FAERS Safety Report 7341589-2 (Version None)
Quarter: 2011Q1

REPORT INFORMATION
  Report Type: 
  Country: None (occurrence: None)
  Receive Date: 20110309
  Receipt Date: 20110304
  Transmission Date: 20110831
  Serious: Yes (Disabling, Other)
  Sender: FDA-Public Use
  Company Number: US-PFIZER INC-2010160619

PATIENT
  Sex: Male

DRUGS (3)
  1. OXYCODONE [Concomitant]
     Indication: ANALGESIC THERAPY
     Dosage: UNK
     Dates: start: 20040101, end: 20100101
  2. CHANTIX [Suspect]
     Indication: SMOKING CESSATION THERAPY
     Dosage: STARTER AND CONTINUING MONTH PACK
     Dates: start: 20080101, end: 20080301
  3. METHADONE [Concomitant]
     Indication: DRUG WITHDRAWAL MAINTENANCE THERAPY
     Dosage: UNK
     Dates: start: 20020101, end: 20100101

REACTIONS (7)
  - DEPRESSION [None]
  - ANGER [None]
  - ANXIETY [None]
  - PARANOIA [None]
  - BIPOLAR DISORDER [None]
  - MOOD SWINGS [None]
  - INSOMNIA [None]
